FAERS Safety Report 4595429-5 (Version None)
Quarter: 2005Q1

REPORT INFORMATION
  Report Type: 
  Country: None (occurrence: None)
  Receive Date: 20050224
  Receipt Date: 20050208
  Transmission Date: 20050727
  Serious: Yes (Other)
  Sender: FDA-Public Use
  Company Number: USA050290276

PATIENT
  Sex: Female

DRUGS (5)
  1. PROZAC [Suspect]
     Indication: DEPRESSION
     Dosage: 20 MG
  2. ACETAMINOPHEN AND HYDROCODONE BITARTRATE [Concomitant]
  3. BENICAR HCT [Concomitant]
  4. PREMARIN [Concomitant]
  5. LIPITOR [Concomitant]

REACTIONS (3)
  - BLOOD BILIRUBIN INCREASED [None]
  - HEPATIC PAIN [None]
  - JAUNDICE [None]
